FAERS Safety Report 7551606-2 (Version None)
Quarter: 2011Q2

REPORT INFORMATION
  Report Type: 
  Country: None (occurrence: None)
  Receive Date: 20110616
  Receipt Date: 20110602
  Transmission Date: 20111010
  Serious: Yes (Hospitalization, Other)
  Sender: FDA-Public Use
  Company Number: US-BAYER-200943659NA

PATIENT
  Age: 25 Year
  Sex: Female
  Weight: 99.773 kg

DRUGS (6)
  1. VICODIN [Concomitant]
  2. ZANTAC [Concomitant]
  3. TUMS [CALCIUM CARBONATE] [Concomitant]
     Dosage: UNK
     Dates: start: 20061026
  4. YASMIN [Suspect]
     Indication: MENSTRUATION IRREGULAR
     Dosage: UNK
     Dates: start: 20030101, end: 20080501
  5. MOTRIN [Concomitant]
  6. ANTIBIOTICS [Concomitant]
     Dosage: UNK
     Dates: start: 20060101

REACTIONS (3)
  - ORGAN FAILURE [None]
  - CHOLECYSTITIS CHRONIC [None]
  - CHOLELITHIASIS [None]
